FAERS Safety Report 4640112-0 (Version None)
Quarter: 2005Q2

REPORT INFORMATION
  Report Type: 
  Country: None (occurrence: None)
  Receive Date: 20050420
  Receipt Date: 20040630
  Transmission Date: 20051028
  Serious: Yes (Life-Threatening)
  Sender: FDA-Public Use
  Company Number: JP-ROCHE-373067

PATIENT
  Age: 75 Year
  Sex: Female

DRUGS (4)
  1. ROCEPHIN [Suspect]
     Indication: DRUG USE FOR UNKNOWN INDICATION
     Route: 065
     Dates: start: 20030519, end: 20030522
  2. MEIACT [Concomitant]
     Route: 048
     Dates: start: 20030501
  3. CLARITHROMYCIN [Concomitant]
     Route: 048
     Dates: start: 20030506
  4. GATIFLO [Concomitant]
     Route: 048
     Dates: start: 20030509

REACTIONS (5)
  - ACUTE RESPIRATORY DISTRESS SYNDROME [None]
  - CARDIOMEGALY [None]
  - DEPRESSED LEVEL OF CONSCIOUSNESS [None]
  - INTERSTITIAL LUNG DISEASE [None]
  - LYMPHOCYTE STIMULATION TEST POSITIVE [None]
